FAERS Safety Report 15308505 (Version 3)
Quarter: 2018Q4

REPORT INFORMATION
  Report Type: Report from Study
  Country: US (occurrence: US)
  Receive Date: 20180822
  Receipt Date: 20181210
  Transmission Date: 20190204
  Serious: No
  Sender: FDA-Public Use
  Company Number: US-INCYTE CORPORATION-2018IN007988

PATIENT

DRUGS (6)
  1. ASPIRIN                            /00002701/ [Concomitant]
     Active Substance: ASPIRIN
     Indication: PRODUCT USED FOR UNKNOWN INDICATION
     Route: 065
  2. BABY ASPIRIN [Concomitant]
     Active Substance: ASPIRIN
     Indication: PRODUCT USED FOR UNKNOWN INDICATION
     Route: 065
  3. JAKAFI [Suspect]
     Active Substance: RUXOLITINIB
     Dosage: 20 MG, BID
     Route: 065
     Dates: start: 201805
  4. JAKAFI [Suspect]
     Active Substance: RUXOLITINIB
     Indication: MYELOFIBROSIS
     Dosage: 10 MG, BID
     Route: 065
     Dates: end: 201805
  5. JAKAFI [Suspect]
     Active Substance: RUXOLITINIB
     Dosage: 20 MG IN THE MORNING ON MONDAYS AND THURSDAYS AND 20 MG BID OTHER DAYS
     Route: 065
  6. JAKAFI [Suspect]
     Active Substance: RUXOLITINIB
     Dosage: 20 MG, UNK
     Route: 048

REACTIONS (9)
  - Platelet count increased [Recovering/Resolving]
  - Decreased immune responsiveness [Unknown]
  - Visual impairment [Not Recovered/Not Resolved]
  - Dysphonia [Unknown]
  - Platelet count decreased [Unknown]
  - Nasopharyngitis [Unknown]
  - Blood potassium increased [Recovered/Resolved]
  - Blood potassium abnormal [Recovered/Resolved]
  - Nail disorder [Not Recovered/Not Resolved]
